FAERS Safety Report 11387461 (Version 8)
Quarter: 2018Q1

REPORT INFORMATION
  Report Type: Report from Study
  Country: JP (occurrence: JP)
  Receive Date: 20150817
  Receipt Date: 20180112
  Transmission Date: 20180508
  Serious: Yes (Life-Threatening, Hospitalization)
  Sender: FDA-Public Use
  Company Number: JP-EISAI MEDICAL RESEARCH-EC-2015-009513

PATIENT
  Age: 52 Year
  Sex: Female
  Weight: 45 kg

DRUGS (16)
  1. LENVIMA [Suspect]
     Active Substance: LENVATINIB
     Indication: FOLLICULAR THYROID CANCER
     Route: 048
     Dates: start: 20150804, end: 20150818
  2. NEXIUM [Concomitant]
     Active Substance: ESOMEPRAZOLE MAGNESIUM
  3. LYRICA [Concomitant]
     Active Substance: PREGABALIN
  4. ATELEC [Concomitant]
     Active Substance: CILNIDIPINE
  5. LOXONIN [Concomitant]
     Active Substance: LOXOPROFEN SODIUM
  6. ASPARA-CA [Concomitant]
     Active Substance: CALCIUM ASPARTATE
  7. DECADRON [Concomitant]
     Active Substance: DEXAMETHASONE
  8. SULBACILLIN [Concomitant]
     Active Substance: AMPICILLIN SODIUM\SULBACTAM SODIUM
  9. ONEALFA [Concomitant]
     Active Substance: ALFACALCIDOL
  10. OLMETEC [Concomitant]
     Active Substance: OLMESARTAN MEDOXOMIL
  11. LENVIMA [Suspect]
     Active Substance: LENVATINIB
     Route: 048
     Dates: start: 20150825, end: 20150909
  12. LENVIMA [Suspect]
     Active Substance: LENVATINIB
     Route: 048
     Dates: start: 20150911, end: 20151208
  13. THYRADIN S [Concomitant]
     Active Substance: LEVOTHYROXINE SODIUM
  14. RINDERON V [Concomitant]
     Active Substance: BETAMETHASONE VALERATE
  15. AROMASIN [Concomitant]
     Active Substance: EXEMESTANE
  16. OXYCONTIN [Concomitant]
     Active Substance: OXYCODONE HYDROCHLORIDE

REACTIONS (1)
  - Prinzmetal angina [Recovered/Resolved]

NARRATIVE: CASE EVENT DATE: 20151208
